FAERS Safety Report 8105641-6 (Version None)
Quarter: 2012Q1

REPORT INFORMATION
  Report Type: 
  Country: None (occurrence: None)
  Receive Date: 20120201
  Receipt Date: 20120123
  Transmission Date: 20120608
  Serious: Yes (Other)
  Sender: FDA-Public Use
  Company Number: CHPA2012US001999

PATIENT
  Age: 56 Year
  Sex: Female

DRUGS (2)
  1. EXCEDRIN EXTRA STRENGTH TABLETS [Suspect]
     Indication: HEADACHE
     Dosage: UNK, UNK
     Route: 048
  2. EXCEDRIN (MIGRAINE) [Suspect]
     Indication: TENSION HEADACHE
     Dosage: UP TO 8 DF, A DAY
     Route: 048

REACTIONS (6)
  - SPONDYLITIS [None]
  - DRUG DEPENDENCE [None]
  - CONCOMITANT DISEASE AGGRAVATED [None]
  - RENAL FAILURE CHRONIC [None]
  - TENSION HEADACHE [None]
  - CONDITION AGGRAVATED [None]
